FAERS Safety Report 18458293 (Version 1)
Quarter: 2020Q4

REPORT INFORMATION
  Report Type: Spontaneous
  Country: SE (occurrence: SE)
  Receive Date: 20201103
  Receipt Date: 20201103
  Transmission Date: 20210114
  Serious: Yes (Other)
  Sender: FDA-Public Use
  Company Number: SE-GALDERMA-SE2020047139

PATIENT
  Age: 17 Year
  Sex: Male
  Weight: 85 kg

DRUGS (1)
  1. EPIDUO [Suspect]
     Active Substance: ADAPALENE\BENZOYL PEROXIDE
     Indication: ACNE
     Dosage: 0.1%/2.5%
     Route: 061
     Dates: start: 20200909, end: 20200911

REACTIONS (1)
  - Chemical burn of skin [Recovered/Resolved with Sequelae]

NARRATIVE: CASE EVENT DATE: 20200911
